FAERS Safety Report 6722642-0 (Version None)
Quarter: 2010Q2

REPORT INFORMATION
  Report Type: 
  Country: None (occurrence: None)
  Receive Date: 20100512
  Receipt Date: 20100505
  Transmission Date: 20101027
  Serious: Yes (Other)
  Sender: FDA-Public Use
  Company Number: US-PFIZER INC-2005141741

PATIENT
  Sex: Female
  Weight: 77 kg

DRUGS (12)
  1. CELEBREX [Suspect]
     Indication: ARTHRITIS
     Dosage: 1 DF, 1X/DAY
     Route: 048
     Dates: start: 19990101, end: 20020101
  2. BEXTRA [Suspect]
     Indication: ARTHRITIS
     Dosage: UNK
     Route: 048
     Dates: end: 20050101
  3. NEURONTIN [Suspect]
     Indication: NERVE INJURY
     Dosage: 100 MG, DAILY
     Route: 048
  4. NEURONTIN [Suspect]
     Dosage: 600 MG, 3X/DAY
  5. TOPAMAX [Suspect]
     Indication: NEURALGIA
     Dosage: UNK
     Route: 048
  6. CYMBALTA [Suspect]
     Indication: NEURALGIA
     Route: 048
  7. GABITRIL [Suspect]
     Indication: NEURALGIA
     Dosage: 10 MG, 1X/DAY
     Route: 048
  8. LYRICA [Concomitant]
     Dosage: UNK
  9. TOPROL-XL [Concomitant]
     Indication: HYPERTENSION
     Dosage: UNK
     Route: 048
  10. MAXZIDE [Concomitant]
     Dosage: UNK
     Route: 048
  11. ACETYLSALICYLIC ACID [Concomitant]
     Dosage: UNK
     Route: 048
  12. ZYRTEC [Concomitant]
     Dosage: UNK
     Route: 048

REACTIONS (14)
  - ARTHRALGIA [None]
  - BLOOD CREATININE INCREASED [None]
  - CHILLS [None]
  - DRUG INEFFECTIVE [None]
  - FALL [None]
  - FEELING ABNORMAL [None]
  - GAIT DISTURBANCE [None]
  - MEMORY IMPAIRMENT [None]
  - MENTAL IMPAIRMENT [None]
  - NAUSEA [None]
  - NERVE INJURY [None]
  - PANIC ATTACK [None]
  - SWELLING [None]
  - VOMITING [None]
